FAERS Safety Report 6186696-5 (Version None)
Quarter: 2009Q2

REPORT INFORMATION
  Report Type: 
  Country: None (occurrence: None)
  Receive Date: 20090512
  Receipt Date: 20090501
  Transmission Date: 20091009
  Serious: Yes (Life-Threatening, Hospitalization)
  Sender: FDA-Public Use
  Company Number: JP-JNJFOC-20090500085

PATIENT
  Age: 41 Year
  Sex: Male

DRUGS (4)
  1. PREZISTA [Suspect]
     Indication: HIV INFECTION
     Route: 048
  2. INTELENCE [Suspect]
     Indication: HIV INFECTION
     Route: 048
  3. DOGMATYL [Concomitant]
     Indication: DEPRESSION
     Route: 048
  4. AMOXAN [Concomitant]
     Indication: DEPRESSION
     Route: 048

REACTIONS (2)
  - DRUG ERUPTION [None]
  - OEDEMA [None]
